FAERS Safety Report 16597905 (Version 1)
Quarter: 2019Q3

REPORT INFORMATION
  Report Type: Spontaneous
  Country: US (occurrence: US)
  Receive Date: 20190719
  Receipt Date: 20190719
  Transmission Date: 20191004
  Serious: No
  Sender: FDA-Public Use
  Company Number: US-PFIZER INC-2019307658

PATIENT
  Age: 63 Year
  Sex: Female
  Weight: 90.72 kg

DRUGS (1)
  1. HYDROCORTISONE ACETATE. [Suspect]
     Active Substance: HYDROCORTISONE ACETATE
     Indication: FIBROMYALGIA
     Dosage: UNK

REACTIONS (4)
  - Haemorrhoids [Unknown]
  - Constipation [Unknown]
  - Off label use [Unknown]
  - Product use in unapproved indication [Unknown]
